FAERS Safety Report 6361630-3 (Version None)
Quarter: 2009Q3

REPORT INFORMATION
  Report Type: 
  Country: None (occurrence: None)
  Receive Date: 20090918
  Receipt Date: 20090909
  Transmission Date: 20100115
  Serious: Yes (Life-Threatening, Hospitalization)
  Sender: FDA-Public Use
  Company Number: DE-TEVA-205152ISR

PATIENT
  Sex: Female
  Weight: 35 kg

DRUGS (3)
  1. CISPLATIN [Suspect]
     Indication: METASTATIC GASTRIC CANCER
     Route: 042
     Dates: start: 20090617, end: 20090731
  2. DOCETAXEL [Suspect]
     Indication: METASTATIC GASTRIC CANCER
     Route: 042
     Dates: start: 20090617, end: 20090731
  3. CETUXIMAB [Concomitant]
     Indication: METASTATIC GASTRIC CANCER
     Route: 042
     Dates: start: 20090617, end: 20090731

REACTIONS (3)
  - ASTHENIA [None]
  - CACHEXIA [None]
  - LUNG ABSCESS [None]
